FAERS Safety Report 9263910 (Version 1)
Quarter: 2013Q2

REPORT INFORMATION
  Report Type: Spontaneous
  Country: US (occurrence: US)
  Receive Date: 20130430
  Receipt Date: 20130430
  Transmission Date: 20140414
  Serious: No
  Sender: FDA-Public Use
  Company Number: US-PFIZER INC-2013130863

PATIENT
  Age: 80 Year
  Sex: Male
  Weight: 97.51 kg

DRUGS (4)
  1. CORGARD [Suspect]
     Indication: ESSENTIAL TREMOR
     Dosage: 40 MG, DAILY
  2. CORGARD [Suspect]
     Indication: CARDIAC DISORDER
  3. NADOLOL [Suspect]
     Indication: ESSENTIAL TREMOR
     Dosage: UNK
  4. NADOLOL [Suspect]
     Indication: CARDIAC DISORDER

REACTIONS (2)
  - Neuralgia [Unknown]
  - Drug ineffective [Unknown]
